FAERS Safety Report 9718249 (Version 1)
Quarter: 2013Q4

REPORT INFORMATION
  Report Type: Spontaneous
  Country: US (occurrence: US)
  Receive Date: 20131125
  Receipt Date: 20131125
  Transmission Date: 20140711
  Serious: No
  Sender: FDA-Public Use
  Company Number: US-VIVUS-2013V1000096

PATIENT
  Age: 34 Year
  Sex: Female
  Weight: 140.29 kg

DRUGS (6)
  1. QSYMIA 7.5MG/46MG [Suspect]
     Indication: WEIGHT DECREASED
     Route: 048
     Dates: start: 20121227, end: 20130205
  2. QSYMIA 3.75MG/23MG [Suspect]
     Indication: WEIGHT DECREASED
     Route: 048
     Dates: start: 20121213, end: 20121226
  3. ATENOLOL [Concomitant]
     Indication: TRANSIENT ISCHAEMIC ATTACK
     Dates: start: 2009
  4. TRIAMTERENE [Concomitant]
     Indication: TRANSIENT ISCHAEMIC ATTACK
     Dates: start: 2009
  5. AMERGE [Concomitant]
     Indication: MIGRAINE
     Dates: start: 2003
  6. ZOLOFT [Concomitant]
     Indication: PRODUCT USED FOR UNKNOWN INDICATION
     Dates: start: 2007

REACTIONS (6)
  - Skin discolouration [Recovered/Resolved]
  - Feeling abnormal [Recovered/Resolved]
  - Blood pressure fluctuation [Recovered/Resolved]
  - Heart rate decreased [Recovered/Resolved]
  - Mood swings [Recovered/Resolved]
  - Influenza [Recovered/Resolved]
